FAERS Safety Report 9922434 (Version 1)
Quarter: 2014Q1

REPORT INFORMATION
  Report Type: Spontaneous
  Country: DE (occurrence: DE)
  Receive Date: 20140225
  Receipt Date: 20140225
  Transmission Date: 20141002
  Serious: Yes (Congenital Anomaly, Other)
  Sender: FDA-Public Use
  Company Number: PHHY2014DE022405

PATIENT
  Sex: Female

DRUGS (4)
  1. OLMESARTAN [Suspect]
     Dosage: (MATERNAL DOSE:5 MG/DAY)
     Route: 064
  2. METHYLDOPA [Suspect]
     Route: 064
  3. SIMVASTATIN [Suspect]
  4. ACETYLSALICYLIC ACID [Suspect]

REACTIONS (5)
  - Kidney malformation [Unknown]
  - Premature baby [Unknown]
  - Pyelocaliectasis [Unknown]
  - Urine output decreased [Unknown]
  - Foetal exposure during pregnancy [Unknown]
